FAERS Safety Report 17912604 (Version 1)
Quarter: 2020Q2

REPORT INFORMATION
  Report Type: Spontaneous
  Country: DE (occurrence: DE)
  Receive Date: 20200618
  Receipt Date: 20200618
  Transmission Date: 20200714
  Serious: Yes (Hospitalization, Other)
  Sender: FDA-Public Use
  Company Number: DE-PFIZER INC-2020233956

PATIENT
  Age: 92 Year
  Sex: Female
  Weight: 76.5 kg

DRUGS (7)
  1. BISOPROLOL [Suspect]
     Active Substance: BISOPROLOL
     Dosage: 3.75 MG, 2X/DAY
  2. LATANOPROST / TIMOLOL [Concomitant]
     Dosage: 1 DF, 1X/DAY
  3. APIXABAN [Concomitant]
     Active Substance: APIXABAN
     Dosage: 1.5 MG, 2X/DAY
  4. AMLODIPINE BESILATE [Suspect]
     Active Substance: AMLODIPINE BESYLATE
     Dosage: 5 MG, 2X/DAY
  5. TORASEMID [Suspect]
     Active Substance: TORSEMIDE
     Dosage: 50 MG, 1X/DAY
  6. KALINOR [POTASSIUM CHLORIDE] [Concomitant]
     Active Substance: POTASSIUM CHLORIDE
     Dosage: 1 DF, 1X/DAY
  7. OLMESARTAN [Concomitant]
     Active Substance: OLMESARTAN
     Dosage: 20 MG, 1X/DAY

REACTIONS (7)
  - Dyspnoea [Unknown]
  - Hypoxia [Unknown]
  - Oedema peripheral [Unknown]
  - General physical health deterioration [Unknown]
  - Rhonchi [Unknown]
  - Oxygen saturation decreased [Unknown]
  - Cyanosis [Unknown]
